FAERS Safety Report 5266174-8 (Version None)
Quarter: 2007Q1

REPORT INFORMATION
  Report Type: 
  Country: None (occurrence: None)
  Receive Date: 20070315
  Receipt Date: 20070306
  Transmission Date: 20070707
  Serious: Yes (Hospitalization)
  Sender: FDA-Public Use
  Company Number: FR-JNJFOC-20070301051

PATIENT
  Age: 62 Year
  Sex: Male

DRUGS (4)
  1. TAVANIC [Suspect]
     Indication: BRONCHITIS
     Route: 048
     Dates: start: 20070120, end: 20070130
  2. GLUCOPHAGE [Concomitant]
     Indication: DIABETES MELLITUS
     Route: 065
  3. INSULIN [Concomitant]
     Indication: DIABETES MELLITUS
     Route: 065
  4. AUGMENTIN [Concomitant]
     Indication: BRONCHITIS
     Route: 065

REACTIONS (3)
  - ARTHRALGIA [None]
  - BALANCE DISORDER [None]
  - TENDONITIS [None]
